FAERS Safety Report 6681007-0 (Version None)
Quarter: 2010Q2

REPORT INFORMATION
  Report Type: 
  Country: None (occurrence: None)
  Receive Date: 20100413
  Receipt Date: 20100413
  Transmission Date: 20101027
  Serious: Yes (Hospitalization)
  Sender: FDA-Public Use
  Company Number: None

PATIENT
  Sex: Female
  Weight: 70 kg

DRUGS (2)
  1. CYTARABINE [Suspect]
     Dosage: 1190 MG
  2. DAUNORUBICIN HCL [Suspect]
     Dosage: 465 MG

REACTIONS (1)
  - FEBRILE NEUTROPENIA [None]
